FAERS Safety Report 15976181 (Version 2)
Quarter: 2019Q4

REPORT INFORMATION
  Report Type: Spontaneous
  Country: US (occurrence: US)
  Receive Date: 20190218
  Receipt Date: 20191007
  Transmission Date: 20200122
  Serious: No
  Sender: FDA-Public Use
  Company Number: US-PFIZER INC-2019061830

PATIENT
  Age: 83 Year
  Sex: Male

DRUGS (1)
  1. CLINDAMYCIN. [Suspect]
     Active Substance: CLINDAMYCIN
     Dosage: UNK

REACTIONS (3)
  - Drug hypersensitivity [Unknown]
  - Dyspnoea [Unknown]
  - Palpitations [Unknown]
